FAERS Safety Report 10608116 (Version 1)
Quarter: 2014Q4

REPORT INFORMATION
  Report Type: Spontaneous
  Country: US (occurrence: US)
  Receive Date: 20141125
  Receipt Date: 20141125
  Transmission Date: 20150529
  Serious: Yes (Hospitalization)
  Sender: FDA-Public Use
  Company Number: US-ASTRAZENECA-2014SE87605

PATIENT
  Age: 50 Year
  Sex: Female
  Weight: 74.8 kg

DRUGS (8)
  1. ENTOCORT [Suspect]
     Active Substance: BUDESONIDE
     Route: 048
     Dates: start: 2014
  2. HUMIRA [Suspect]
     Active Substance: ADALIMUMAB
     Indication: CROHN^S DISEASE
     Dosage: 40 MG 1 IN TWO WEEKS
     Route: 065
     Dates: start: 2011
  3. MULTIVITAMINS FOR WOMEN OVER 50 [Concomitant]
  4. VITAMINS [Concomitant]
     Active Substance: VITAMINS
  5. MORPHINE [Suspect]
     Active Substance: MORPHINE
     Route: 065
  6. VITAMIN B12 [Concomitant]
     Active Substance: CYANOCOBALAMIN
  7. HUMIRA [Suspect]
     Active Substance: ADALIMUMAB
     Indication: CROHN^S DISEASE
     Dosage: 40 MG 1 IN ONE WEEK
     Route: 065
  8. FISH OIL [Concomitant]
     Active Substance: FISH OIL
     Dosage: 1 IN I D

REACTIONS (8)
  - Rosacea [Unknown]
  - Hot flush [Unknown]
  - Acne [Unknown]
  - Therapeutic response changed [Unknown]
  - Intestinal obstruction [Recovered/Resolved]
  - Drug effect decreased [Unknown]
  - Drug ineffective [Unknown]
  - Rash macular [Unknown]

NARRATIVE: CASE EVENT DATE: 2013
